FAERS Safety Report 26180007 (Version 1)
Quarter: 2025Q4

REPORT INFORMATION
  Report Type: Spontaneous
  Country: EU (occurrence: EU)
  Receive Date: 20251219
  Receipt Date: 20251219
  Transmission Date: 20260118
  Serious: Yes (Other)
  Sender: Kenvue
  Company Number: None

PATIENT
  Age: 91 Year
  Weight: 54 kg

DRUGS (2)
  1. IBUPROFEN [Interacting]
     Active Substance: IBUPROFEN
     Indication: Neck pain
     Dosage: STRENGTH: UNKNOWN.DOSAGE: UNKNOWN
     Route: 061
  2. SERTRALINE HYDROCHLORIDE [Interacting]
     Active Substance: SERTRALINE HYDROCHLORIDE
     Indication: Sedative therapy
     Dosage: 25 MILLIGRAM, ONCE A DAY
     Route: 061

REACTIONS (6)
  - Gastric ulcer [Recovering/Resolving]
  - Haematemesis [Unknown]
  - Fatigue [Unknown]
  - Drug interaction [Unknown]
  - Faeces discoloured [Unknown]
  - Abdominal pain upper [Unknown]
